FAERS Safety Report 17223150 (Version 1)
Quarter: 2020Q1

REPORT INFORMATION
  Report Type: Report from Study
  Country: CA (occurrence: CA)
  Receive Date: 20200102
  Receipt Date: 20200102
  Transmission Date: 20200409
  Serious: Yes (Other)
  Sender: FDA-Public Use
  Company Number: CA-ORION CORPORATION ORION PHARMA-TREX2019-6202

PATIENT
  Age: 40 Year
  Sex: Female

DRUGS (12)
  1. COSENTYX [Suspect]
     Active Substance: SECUKINUMAB
     Route: 058
  2. COSENTYX [Suspect]
     Active Substance: SECUKINUMAB
     Route: 058
  3. COSENTYX [Suspect]
     Active Substance: SECUKINUMAB
     Route: 058
  4. METHOTREXATE (TRADE NAME UNKNOWN) [Suspect]
     Active Substance: METHOTREXATE
     Indication: PRODUCT USED FOR UNKNOWN INDICATION
     Route: 065
  5. COSENTYX [Suspect]
     Active Substance: SECUKINUMAB
     Route: 058
  6. COSENTYX [Suspect]
     Active Substance: SECUKINUMAB
     Route: 058
  7. COSENTYX [Suspect]
     Active Substance: SECUKINUMAB
     Route: 058
  8. SULFASALAZINE. [Concomitant]
     Active Substance: SULFASALAZINE
     Route: 065
  9. COSENTYX [Suspect]
     Active Substance: SECUKINUMAB
     Route: 058
  10. HUMIRA [Concomitant]
     Active Substance: ADALIMUMAB
     Route: 058
  11. COSENTYX [Suspect]
     Active Substance: SECUKINUMAB
     Indication: PSORIATIC ARTHROPATHY
     Route: 058
  12. ENBREL [Concomitant]
     Active Substance: ETANERCEPT
     Route: 065

REACTIONS (13)
  - Autism spectrum disorder [Unknown]
  - Fibromyalgia [Unknown]
  - Vomiting [Unknown]
  - Abdominal discomfort [Unknown]
  - Hypoaesthesia [Unknown]
  - Nausea [Unknown]
  - Drug ineffective [Unknown]
  - Feeling abnormal [Unknown]
  - Synovitis [Unknown]
  - Epistaxis [Unknown]
  - Malaise [Unknown]
  - Pain [Unknown]
  - Pain in extremity [Unknown]
